FAERS Safety Report 7714749-6 (Version None)
Quarter: 2011Q3

REPORT INFORMATION
  Report Type: 
  Country: None (occurrence: None)
  Receive Date: 20110804
  Receipt Date: 20110419
  Transmission Date: 20111222
  Serious: Yes (Other)
  Sender: FDA-Public Use
  Company Number: DSU-2011-02891

PATIENT
  Age: 64 Year
  Sex: Male
  Weight: 108.8633 kg

DRUGS (5)
  1. TRICOR (FENOFIBRATE) (145 MILLIGRAM) (FENOFIBRATE) [Concomitant]
  2. BENICAR HCT [Suspect]
     Indication: HYPERTENSION
     Dosage: 40/12.5 MG,PER ORAL
     Route: 048
     Dates: start: 20030101
  3. GLYBURIDE (GLIBENCLAMIDE) (3 MILLIGRAM) (GLIBENCLAMIDE) [Concomitant]
  4. METFORMIN HCL [Concomitant]
  5. WELCHOL [Concomitant]

REACTIONS (1)
  - ANGIOEDEMA [None]
